FAERS Safety Report 7656683-6 (Version None)
Quarter: 2011Q3

REPORT INFORMATION
  Report Type: 
  Country: None (occurrence: None)
  Receive Date: 20110801
  Receipt Date: 20110715
  Transmission Date: 20111222
  Serious: Yes (Hospitalization)
  Sender: FDA-Public Use
  Company Number: 2011SP033421

PATIENT
  Age: 20 Year
  Sex: Female

DRUGS (4)
  1. DEXAMETHASONE [Suspect]
     Indication: GLIOBLASTOMA MULTIFORME
     Dosage: 75 MG, QD;
  2. DEXAMETHASONE [Concomitant]
  3. COTRIM [Concomitant]
  4. TEMOZOLOMIDE [Suspect]
     Indication: GLIOBLASTOMA MULTIFORME
     Dosage: 75 MG/M2, QD;

REACTIONS (2)
  - STOMATOCOCCAL INFECTION [None]
  - RASH PUSTULAR [None]
